FAERS Safety Report 6802494-0 (Version None)
Quarter: 2010Q2

REPORT INFORMATION
  Report Type: 
  Country: None (occurrence: None)
  Receive Date: 20100628
  Receipt Date: 20100614
  Transmission Date: 20101027
  Serious: Yes (Hospitalization, Other)
  Sender: FDA-Public Use
  Company Number: US-BAYER-201018468NA

PATIENT
  Age: 47 Year
  Sex: Female
  Weight: 50 kg

DRUGS (9)
  1. YAZ [Suspect]
     Indication: CONTRACEPTION
     Route: 048
     Dates: start: 20071101, end: 20080401
  2. MULTI-VITAMIN [Concomitant]
  3. GLUCOSAMINE [Concomitant]
  4. CIPROFLOXACIN [Concomitant]
     Dates: start: 20091101
  5. MINOCYCLINE [Concomitant]
  6. DIETARY SUPPLEMENTS [Concomitant]
  7. NSAIDS [Concomitant]
  8. DESOXIMETASONE [Concomitant]
     Dates: start: 20080201
  9. AMOXICILLIN [Concomitant]
     Dates: start: 20080401

REACTIONS (13)
  - ANGIOPATHY [None]
  - CHEST PAIN [None]
  - DEEP VEIN THROMBOSIS [None]
  - DYSPNOEA [None]
  - HYPOAESTHESIA [None]
  - LIVER DISORDER [None]
  - MUSCULOSKELETAL STIFFNESS [None]
  - NECK PAIN [None]
  - OEDEMA PERIPHERAL [None]
  - PAIN IN EXTREMITY [None]
  - PARAESTHESIA [None]
  - PULMONARY EMBOLISM [None]
  - PULMONARY INFARCTION [None]
